FAERS Safety Report 7297659-0 (Version None)
Quarter: 2011Q1

REPORT INFORMATION
  Report Type: 
  Country: None (occurrence: None)
  Receive Date: 20110216
  Receipt Date: 20110210
  Transmission Date: 20110831
  Serious: Yes (Hospitalization)
  Sender: FDA-Public Use
  Company Number: FR-MERCK-1101FRA00083

PATIENT
  Age: 2 Year
  Sex: Female

DRUGS (3)
  1. SINGULAIR [Suspect]
     Indication: ASTHMA
     Route: 048
     Dates: start: 20101217, end: 20101227
  2. FLUTICASONE PROPIONATE [Concomitant]
     Route: 055
  3. DESLORATADINE [Concomitant]
     Route: 048

REACTIONS (1)
  - FEBRILE CONVULSION [None]
